FAERS Safety Report 6989498-2 (Version None)
Quarter: 2010Q3

REPORT INFORMATION
  Report Type: 
  Country: None (occurrence: None)
  Receive Date: 20100916
  Receipt Date: 20100111
  Transmission Date: 20110219
  Serious: Yes (Hospitalization)
  Sender: FDA-Public Use
  Company Number: FR-PFIZER INC-2009282136

PATIENT
  Sex: Female
  Weight: 80 kg

DRUGS (1)
  1. LYRICA [Suspect]
     Indication: SCIATICA
     Dosage: 150 MG, 2X/DAY
     Route: 048
     Dates: start: 20080326, end: 20081205

REACTIONS (1)
  - DIABETES MELLITUS INADEQUATE CONTROL [None]
